APPROVED DRUG PRODUCT: CONDYLOX
Active Ingredient: PODOFILOX
Strength: 0.5%
Dosage Form/Route: GEL;TOPICAL
Application: N020529 | Product #001
Applicant: ALLERGAN SALES LLC
Approved: Mar 13, 1997 | RLD: Yes | RS: No | Type: DISCN